FAERS Safety Report 9984566 (Version 2)
Quarter: 2014Q3

REPORT INFORMATION
  Report Type: Spontaneous
  Country: FR (occurrence: FR)
  Receive Date: 20140307
  Receipt Date: 20140821
  Transmission Date: 20150326
  Serious: Yes (Life-Threatening, Hospitalization)
  Sender: FDA-Public Use
  Company Number: FR-ASTRAZENECA-2014SE16143

PATIENT
  Age: 490 Month
  Sex: Male

DRUGS (22)
  1. CIFLOX [Suspect]
     Active Substance: CIPROFLOXACIN
     Route: 048
     Dates: start: 20140131, end: 20140203
  2. ARACYTINE [Concomitant]
     Active Substance: CYTARABINE
     Dates: start: 20130926
  3. CICLOSPORINE [Concomitant]
     Active Substance: CYCLOSPORINE
     Dates: start: 20140115
  4. ANTI-LYMPHOCYTE SERUM [Concomitant]
     Dates: start: 20140115
  5. VALACICLOVIR [Suspect]
     Active Substance: VALACYCLOVIR HYDROCHLORIDE
     Indication: PROPHYLAXIS
     Route: 048
     Dates: start: 20140107, end: 20140115
  6. ORACILLINE [Suspect]
     Active Substance: PENICILLIN V
     Route: 048
     Dates: start: 20140131, end: 20140205
  7. ENDOXAN [Concomitant]
     Active Substance: CYCLOPHOSPHAMIDE
     Dates: start: 20140115
  8. SANDIMMUNE [Suspect]
     Active Substance: CYCLOSPORINE
     Indication: PROPHYLAXIS
     Route: 042
     Dates: start: 20140114, end: 20140129
  9. SANDIMMUNE [Suspect]
     Active Substance: CYCLOSPORINE
     Indication: PROPHYLAXIS
     Route: 042
     Dates: start: 20140206, end: 20140207
  10. VALACICLOVIR [Suspect]
     Active Substance: VALACYCLOVIR HYDROCHLORIDE
     Indication: PROPHYLAXIS
     Route: 048
     Dates: start: 20140128, end: 20140203
  11. METHOTREXATE [Concomitant]
     Active Substance: METHOTREXATE
     Dates: start: 20140115
  12. INEXIUM [Suspect]
     Active Substance: ESOMEPRAZOLE
     Route: 048
     Dates: start: 20140113, end: 20140204
  13. DONORUBICINE [Concomitant]
     Dates: start: 20130926
  14. NOXAFIL [Concomitant]
     Active Substance: POSACONAZOLE
     Indication: ZYGOMYCOSIS
  15. LAROXYL [Suspect]
     Active Substance: AMITRIPTYLINE
     Route: 048
     Dates: start: 20140123, end: 20140204
  16. URSOLVAN [Concomitant]
     Active Substance: URSODIOL
     Dates: start: 2014
  17. BUSULVEX [Concomitant]
     Dates: start: 20140115
  18. ARACYTINE [Concomitant]
     Active Substance: CYTARABINE
     Dates: start: 20131106, end: 20131110
  19. NEORAL [Suspect]
     Active Substance: CYCLOSPORINE
     Indication: PROPHYLAXIS
     Route: 048
     Dates: start: 20140130, end: 20140206
  20. CIPROFLOXACINE [Suspect]
     Active Substance: CIPROFLOXACIN
     Route: 042
     Dates: start: 20140123, end: 20140131
  21. DONORUBICINE [Concomitant]
     Dates: start: 20131106, end: 20131110
  22. AMBISOME [Concomitant]
     Active Substance: AMPHOTERICIN B
     Indication: ZYGOMYCOSIS

REACTIONS (6)
  - Renal tubular necrosis [Recovered/Resolved]
  - Thrombotic microangiopathy [Unknown]
  - Haemolytic uraemic syndrome [Recovering/Resolving]
  - Renal failure acute [Recovered/Resolved]
  - Nephrocalcinosis [Recovered/Resolved]
  - Overdose [Unknown]

NARRATIVE: CASE EVENT DATE: 201402
